FAERS Safety Report 25629593 (Version 1)
Quarter: 2025Q3

REPORT INFORMATION
  Report Type: Report from Study
  Country: US (occurrence: US)
  Receive Date: 20250731
  Receipt Date: 20250731
  Transmission Date: 20251021
  Serious: Yes (Other)
  Sender: ALEXION PHARMACEUTICALS
  Company Number: US-AstraZeneca-CH-00918433A

PATIENT
  Sex: Female
  Weight: 100 kg

DRUGS (2)
  1. SELUMETINIB [Suspect]
     Active Substance: SELUMETINIB
     Indication: Thyroid cancer
     Dosage: 75 MILLIGRAM, BID
  2. ZELBORAF [Concomitant]
     Active Substance: VEMURAFENIB
     Route: 065

REACTIONS (2)
  - Thyroid cancer [Unknown]
  - Off label use [Unknown]
